FAERS Safety Report 9721528 (Version 1)
Quarter: 2013Q4

REPORT INFORMATION
  Report Type: Spontaneous
  Country: GB (occurrence: GB)
  Receive Date: 20131130
  Receipt Date: 20131130
  Transmission Date: 20140711
  Serious: Yes (Other)
  Sender: FDA-Public Use
  Company Number: GB-BRISTOL-MYERS SQUIBB COMPANY-19844786

PATIENT
  Age: 61 Year
  Sex: Female
  Weight: 55 kg

DRUGS (12)
  1. ABATACEPT [Suspect]
     Indication: RHEUMATOID ARTHRITIS
     Dosage: 750 MG, MONTHLY
     Route: 042
     Dates: start: 20120530, end: 20121122
  2. ENBREL [Suspect]
     Dosage: NO DOSE GIVEN
  3. FERROUS SULFATE [Concomitant]
     Dosage: 200 MG, 3X/DAY
     Route: 048
  4. CO-DYDRAMOL [Concomitant]
     Indication: RHEUMATOID ARTHRITIS
     Route: 048
  5. CO-DYDRAMOL [Concomitant]
     Indication: OSTEOARTHRITIS
     Route: 048
  6. ALENDRONIC ACID [Concomitant]
     Dosage: 70 MG, WEEKLY
  7. IODINE [Concomitant]
     Indication: RHEUMATOID ARTHRITIS
     Dosage: 600 MG, UNK
     Route: 048
  8. IODINE [Concomitant]
     Indication: RHEUMATOID ARTHRITIS
  9. IODINE [Concomitant]
     Indication: OSTEOARTHRITIS
     Dosage: 600 MG, UNK
     Route: 048
  10. IODINE [Concomitant]
     Indication: OSTEOARTHRITIS
  11. PREDNISOLONE [Concomitant]
     Indication: RHEUMATOID ARTHRITIS
     Dosage: 1 DF: 15-20MG DAILY
  12. CLEMASTINE [Concomitant]
     Dosage: 1 MG DAILY

REACTIONS (3)
  - Arthropathy [Unknown]
  - Deep vein thrombosis [Recovered/Resolved]
  - Lower respiratory tract infection [Recovered/Resolved]
